FAERS Safety Report 14013656 (Version 3)
Quarter: 2018Q4

REPORT INFORMATION
  Report Type: Report from Study
  Country: US (occurrence: US)
  Receive Date: 20170926
  Receipt Date: 20181119
  Transmission Date: 20190204
  Serious: Yes (Death, Hospitalization)
  Sender: FDA-Public Use
  Company Number: PHEH2017US030962

PATIENT
  Age: 70 Year
  Sex: Male
  Weight: 64.9 kg

DRUGS (2)
  1. MEKINIST [Suspect]
     Active Substance: TRAMETINIB DIMETHYL SULFOXIDE
     Indication: THYROID CANCER
     Dosage: 2 MG, QD
     Route: 048
     Dates: start: 20170629, end: 20170805
  2. TAFINLAR [Suspect]
     Active Substance: DABRAFENIB MESYLATE
     Indication: THYROID CANCER
     Dosage: 150 MG, BID
     Route: 048
     Dates: start: 20170629, end: 20170805

REACTIONS (11)
  - Cerebral haemorrhage [Fatal]
  - Thyroid cancer [Fatal]
  - White blood cell count increased [Unknown]
  - Malignant neoplasm progression [Fatal]
  - Mental impairment [Not Recovered/Not Resolved]
  - Dysphagia [Unknown]
  - Metastases to central nervous system [Fatal]
  - Nausea [Recovered/Resolved]
  - Vomiting [Recovered/Resolved]
  - Pyrexia [Recovered/Resolved]
  - Product use in unapproved indication [Unknown]

NARRATIVE: CASE EVENT DATE: 20170830
